FAERS Safety Report 6163849-3 (Version None)
Quarter: 2009Q2

REPORT INFORMATION
  Report Type: 
  Country: None (occurrence: None)
  Receive Date: 20090422
  Receipt Date: 20080407
  Transmission Date: 20091009
  Serious: No
  Sender: FDA-Public Use
  Company Number: US-BRISTOL-MYERS SQUIBB COMPANY-14020440

PATIENT
  Age: 89 Year
  Sex: Female
  Weight: 52 kg

DRUGS (2)
  1. DROXIA [Suspect]
     Indication: PLATELET COUNT INCREASED
     Dosage: REDUCED TO 300MG DAILY,REDUCED TO 200MG DAILY FOR ABOUT6MONTHS - 1YEAR.ATPRESENT TAKES 400MG DAILY
     Route: 048
     Dates: start: 20050901
  2. ASPIRIN [Concomitant]

REACTIONS (9)
  - ALOPECIA [None]
  - ASTHENIA [None]
  - BALANCE DISORDER [None]
  - CONFUSIONAL STATE [None]
  - DEPRESSION [None]
  - HOT FLUSH [None]
  - LOSS OF CONSCIOUSNESS [None]
  - RASH [None]
  - VOMITING [None]
